FAERS Safety Report 9220620 (Version 1)
Quarter: 2013Q2

REPORT INFORMATION
  Report Type: Spontaneous
  Country: US (occurrence: None)
  Receive Date: 20130408
  Receipt Date: 20130408
  Transmission Date: 20140414
  Serious: No
  Sender: FDA-Public Use
  Company Number: DL2013-0033

PATIENT
  Age: 24 Year
  Sex: Female

DRUGS (2)
  1. MIFEPRISTONE [Suspect]
     Indication: ABORTION INDUCED
     Route: 048
     Dates: start: 20120806
  2. MISOPROSTOL TABLETS, 200 MG [Suspect]
     Route: 002

REACTIONS (2)
  - Muscle spasms [None]
  - Haemorrhage [None]
